FAERS Safety Report 7458638-3 (Version None)
Quarter: 2011Q2

REPORT INFORMATION
  Report Type: 
  Country: None (occurrence: None)
  Receive Date: 20110504
  Receipt Date: 20110425
  Transmission Date: 20111010
  Serious: Yes (Death)
  Sender: FDA-Public Use
  Company Number: JP-PURDUE-MAG-2011-0001400

PATIENT
  Sex: Male

DRUGS (26)
  1. REFLEX                             /00684602/ [Concomitant]
     Indication: LUNG ADENOCARCINOMA
     Dosage: UNK
     Route: 048
     Dates: start: 20101012, end: 20101025
  2. REFLEX                             /00684602/ [Concomitant]
     Indication: BRAIN CANCER METASTATIC
  3. GEMZAR [Concomitant]
     Indication: LUNG ADENOCARCINOMA
     Dosage: UNK
     Route: 065
     Dates: start: 20101013, end: 20101013
  4. GEMZAR [Concomitant]
     Indication: BONE CANCER METASTATIC
  5. CARBOPLATIN [Concomitant]
     Indication: BRAIN CANCER METASTATIC
     Dosage: UNK
     Dates: start: 20101013, end: 20101013
  6. DEXART [Concomitant]
     Indication: PROPHYLAXIS OF NAUSEA AND VOMITING
     Dosage: UNK
     Route: 065
     Dates: start: 20101013, end: 20101013
  7. GLUACETO [Concomitant]
     Indication: BONE CANCER METASTATIC
  8. TAKEPRON [Concomitant]
     Indication: PROPHYLAXIS
     Dosage: UNK
     Route: 048
     Dates: start: 20101008, end: 20101025
  9. CARBOPLATIN [Concomitant]
     Indication: BONE CANCER METASTATIC
  10. SOLYUGEN [Concomitant]
     Indication: BRAIN CANCER METASTATIC
  11. SOLYUGEN [Concomitant]
     Indication: BONE CANCER METASTATIC
  12. MAGMITT [Concomitant]
     Indication: PROPHYLAXIS
     Dosage: UNK
     Route: 048
     Dates: start: 20100928, end: 20101025
  13. PURSENNID                          /00142207/ [Concomitant]
     Indication: PROPHYLAXIS
     Dosage: UNK
     Route: 048
     Dates: start: 20100928, end: 20101025
  14. DECADRON [Concomitant]
     Indication: CANCER PAIN
     Dosage: UNK
     Route: 048
     Dates: start: 20101008, end: 20101025
  15. OXYCODONE HCL [Suspect]
     Indication: CANCER PAIN
     Dosage: 40 MG, DAILY
     Route: 048
     Dates: start: 20101013, end: 20101025
  16. REFLEX                             /00684602/ [Concomitant]
     Indication: BONE CANCER METASTATIC
  17. CARBOPLATIN [Concomitant]
     Indication: LUNG ADENOCARCINOMA
     Dosage: UNK
     Dates: start: 20100929, end: 20100929
  18. ALOXI [Concomitant]
     Indication: PROPHYLAXIS
     Dosage: UNK
     Dates: start: 20101013, end: 20101013
  19. GLUACETO [Concomitant]
     Indication: BRAIN CANCER METASTATIC
  20. SOLYUGEN [Concomitant]
     Indication: LUNG ADENOCARCINOMA
     Dosage: UNK
     Dates: start: 20101015, end: 20101018
  21. ALOXI [Concomitant]
     Dosage: UNK
     Route: 065
     Dates: start: 20100929, end: 20100929
  22. GLUACETO [Concomitant]
     Indication: LUNG ADENOCARCINOMA
     Dosage: UNK
     Dates: start: 20101005, end: 20101014
  23. OXYCODONE HCL [Suspect]
     Indication: CANCER PAIN
     Dosage: 5 MG, DAILY
     Route: 048
     Dates: start: 20101013, end: 20101025
  24. NOVAMIN                            /00013301/ [Concomitant]
     Indication: PROPHYLAXIS
     Dosage: UNK
     Route: 048
     Dates: start: 20101007, end: 20101025
  25. GEMZAR [Concomitant]
     Indication: BRAIN CANCER METASTATIC
     Dosage: UNK
     Dates: start: 20100929, end: 20100929
  26. DEXART [Concomitant]
     Dosage: UNK
     Dates: start: 20100929, end: 20100929

REACTIONS (1)
  - CEREBRAL INFARCTION [None]
